FAERS Safety Report 10243291 (Version 1)
Quarter: 2014Q2

REPORT INFORMATION
  Report Type: Spontaneous
  Country: BR (occurrence: BR)
  Receive Date: 20140618
  Receipt Date: 20140618
  Transmission Date: 20141212
  Serious: Yes (Hospitalization, Other)
  Sender: FDA-Public Use
  Company Number: PHHY2014BR074243

PATIENT
  Sex: Female
  Weight: 63 kg

DRUGS (1)
  1. ZOMETA [Suspect]
     Indication: METASTASES TO SPINE
     Dosage: 1 DF, EACH 28 DAYS
     Route: 042
     Dates: start: 2011

REACTIONS (3)
  - Myocardial infarction [Recovered/Resolved]
  - Weight decreased [Recovered/Resolved]
  - Visual impairment [Recovering/Resolving]
